FAERS Safety Report 7915914-5 (Version None)
Quarter: 2011Q4

REPORT INFORMATION
  Report Type: 
  Country: None (occurrence: None)
  Receive Date: 20111115
  Receipt Date: 20111103
  Transmission Date: 20120403
  Serious: Yes (Hospitalization, Other)
  Sender: FDA-Public Use
  Company Number: US-ELI_LILLY_AND_COMPANY-US201003007911

PATIENT
  Age: 85 Year
  Sex: Female
  Weight: 44 kg

DRUGS (8)
  1. ULTRACET [Concomitant]
     Dosage: UNK, PRN
  2. CALCIUM +D                         /00188401/ [Concomitant]
     Dosage: UNK, QD
  3. ASPIRIN [Concomitant]
     Dosage: 81 MG, QD
  4. CENTRUM SILVER [Concomitant]
     Dosage: UNK, QD
  5. FORTEO [Suspect]
     Dosage: 20 UG, QD
     Route: 065
     Dates: start: 20091021, end: 20110407
  6. ZOLOFT [Concomitant]
     Dosage: 50 MG, QD
  7. VITAMIN D [Concomitant]
     Dosage: 400 IU, QD
  8. VIT E                              /00110501/ [Concomitant]
     Dosage: UNK, QD

REACTIONS (4)
  - DEEP VEIN THROMBOSIS [None]
  - GASTROINTESTINAL HAEMORRHAGE [None]
  - PNEUMONIA [None]
  - HEART RATE DECREASED [None]
